FAERS Safety Report 6479646-5 (Version None)
Quarter: 2009Q4

REPORT INFORMATION
  Report Type: 
  Country: None (occurrence: None)
  Receive Date: 20091207
  Receipt Date: 20091207
  Transmission Date: 20100525
  Serious: Yes (Other)
  Sender: FDA-Public Use
  Company Number: None

PATIENT
  Age: 62 Year
  Sex: Male
  Weight: 92.0802 kg

DRUGS (2)
  1. FLUOXETINE [Suspect]
     Indication: MAJOR DEPRESSION
     Dosage: II PER DAY PO
     Route: 048
     Dates: start: 20091122, end: 20091203
  2. FLUOXETINE [Suspect]
     Indication: POST-TRAUMATIC STRESS DISORDER
     Dosage: II PER DAY PO
     Route: 048
     Dates: start: 20091122, end: 20091203

REACTIONS (10)
  - CAPSULE ISSUE [None]
  - CONDITION AGGRAVATED [None]
  - DEPRESSIVE SYMPTOM [None]
  - GASTROINTESTINAL DISORDER [None]
  - INFLUENZA [None]
  - POST-TRAUMATIC STRESS DISORDER [None]
  - PRODUCT MEASURED POTENCY ISSUE [None]
  - PRODUCT SUBSTITUTION ISSUE [None]
  - STRESS [None]
  - WITHDRAWAL SYNDROME [None]
